FAERS Safety Report 9099647 (Version 1)
Quarter: 2013Q1

REPORT INFORMATION
  Report Type: Report from Study
  Country: US (occurrence: US)
  Receive Date: 20130214
  Receipt Date: 20130214
  Transmission Date: 20140127
  Serious: Yes (Hospitalization, Other)
  Sender: FDA-Public Use
  Company Number: US-ROCHE-1150320

PATIENT
  Age: 51 Year
  Sex: Female
  Weight: 72.18 kg

DRUGS (3)
  1. BEVACIZUMAB [Suspect]
     Indication: NON-SMALL CELL LUNG CANCER
     Dosage: LAST DOSE PRIOR TO SAE:06/SEP/2012, TOTAL DOSE ADMINISTERED OF BEVACIZUMAB WAS 2250 MG (1125 MG IN C
     Route: 042
     Dates: start: 20120816
  2. CISPLATIN [Suspect]
     Indication: NON-SMALL CELL LUNG CANCER
     Dosage: LAST DOSE PRIOR TO SAE:06/SEP/2012, TOTAL DOSE ADMINISTERED OF CISPLATIN WAS 270 MG (135 MG IN CYCLE
     Route: 042
     Dates: start: 20120816
  3. VINORELBINE TARTRATE [Suspect]
     Indication: NON-SMALL CELL LUNG CANCER
     Dosage: LAST DOSE PRIOR TO SAE:13/SEP/2012
     Route: 042
     Dates: start: 20120816

REACTIONS (7)
  - Device related infection [Unknown]
  - Neutrophil count decreased [Recovered/Resolved]
  - Sepsis [Unknown]
  - Pyrexia [Recovered/Resolved]
  - Anaemia [Recovered/Resolved]
  - Renal failure acute [Unknown]
  - Cerebrovascular accident [Unknown]
